FAERS Safety Report 20748358 (Version 2)
Quarter: 2022Q2

REPORT INFORMATION
  Report Type: Spontaneous
  Country: LV (occurrence: LV)
  Receive Date: 20220426
  Receipt Date: 20220606
  Transmission Date: 20220721
  Serious: Yes (Death, Hospitalization)
  Sender: FDA-Public Use
  Company Number: LV-BAYER-2022P001029

PATIENT
  Age: 67 Year
  Sex: Male

DRUGS (1)
  1. XARELTO [Suspect]
     Active Substance: RIVAROXABAN
     Indication: Atrial fibrillation
     Dosage: 20 MG
     Route: 048

REACTIONS (4)
  - Death [Fatal]
  - Cerebral infarction [Unknown]
  - Product dose omission issue [Unknown]
  - Speech disorder [Unknown]
